FAERS Safety Report 7718448-6 (Version None)
Quarter: 2011Q3

REPORT INFORMATION
  Report Type: 
  Country: None (occurrence: None)
  Receive Date: 20110830
  Receipt Date: 20110825
  Transmission Date: 20111222
  Serious: No
  Sender: FDA-Public Use
  Company Number: US-PFIZER INC-2011198083

PATIENT
  Sex: Female

DRUGS (8)
  1. NEURONTIN [Suspect]
     Indication: PAIN
     Dosage: 100 MG, 2X/DAY
  2. CYMBALTA [Suspect]
     Indication: PAIN
     Dosage: 30 MG, DAILY
  3. HYALURONIC ACID [Suspect]
     Indication: PAIN
     Dosage: UNK
  4. ACETYLSALICYLIC ACID [Concomitant]
     Dosage: 81 MG, DAILY
  5. ULTRAM [Suspect]
     Indication: PAIN
     Dosage: 300 MG, DAILY
  6. HYALGAN [Suspect]
     Indication: PAIN
     Dosage: SIX SHOTS AT AN UNKNOWN DOSE
  7. PLETAL [Suspect]
     Indication: ANTICOAGULANT THERAPY
     Dosage: UNK, 2X/DAY
  8. METOPROLOL [Concomitant]
     Dosage: 50 MG ONE TABLET IN MORNING AND HALF TABLET AT NIGHT

REACTIONS (3)
  - MALAISE [None]
  - DRUG INEFFECTIVE [None]
  - WEIGHT DECREASED [None]
